FAERS Safety Report 5719928-5 (Version None)
Quarter: 2008Q2

REPORT INFORMATION
  Report Type: 
  Country: None (occurrence: None)
  Receive Date: 20080425
  Receipt Date: 20080425
  Transmission Date: 20081010
  Serious: Yes (Other)
  Sender: FDA-Public Use
  Company Number: None

PATIENT
  Sex: Male

DRUGS (5)
  1. REVLIMID [Suspect]
     Indication: MYELODYSPLASTIC SYNDROME
     Dosage: 10MG DAILY PO
     Route: 048
     Dates: start: 20071226, end: 20080117
  2. REVLIMID [Suspect]
     Indication: MYELODYSPLASTIC SYNDROME
     Dosage: 5MG EVERY OTHER DAY PO ON/OFF SINCE 3/1/08
     Route: 048
     Dates: start: 20080301
  3. ATENOLOL [Concomitant]
  4. K-TAB [Concomitant]
  5. OMEPRAZOLE [Concomitant]

REACTIONS (4)
  - BODY TEMPERATURE INCREASED [None]
  - DRUG INEFFECTIVE [None]
  - NEUTROPENIA [None]
  - THROMBOCYTOPENIA [None]
